FAERS Safety Report 12818316 (Version 1)
Quarter: 2016Q4

REPORT INFORMATION
  Report Type: Spontaneous
  Country: VE (occurrence: VE)
  Receive Date: 20161005
  Receipt Date: 20161005
  Transmission Date: 20170207
  Serious: Yes (Hospitalization)
  Sender: FDA-Public Use
  Company Number: PHHY2016VE135429

PATIENT
  Sex: Female

DRUGS (5)
  1. MIFLONIDE [Suspect]
     Active Substance: BUDESONIDE
     Dosage: 400 UG, QD
     Route: 055
  2. FORADIL [Suspect]
     Active Substance: FORMOTEROL FUMARATE
     Dosage: 12 UG, QD
     Route: 055
  3. OMEGA 3 [Concomitant]
     Active Substance: OMEGA-3 FATTY ACIDS
     Indication: PRODUCT USED FOR UNKNOWN INDICATION
     Dosage: 1 DF, QD
     Route: 065
  4. FORADIL [Suspect]
     Active Substance: FORMOTEROL FUMARATE
     Indication: EMPHYSEMA
     Dosage: 24 UG, QD
     Route: 055
  5. MIFLONIDE [Suspect]
     Active Substance: BUDESONIDE
     Indication: EMPHYSEMA
     Dosage: 200 UG, QD
     Route: 055

REACTIONS (4)
  - Dyspnoea [Not Recovered/Not Resolved]
  - Product use issue [Unknown]
  - Tachycardia [Not Recovered/Not Resolved]
  - Influenza [Not Recovered/Not Resolved]
